FAERS Safety Report 25344887 (Version 1)
Quarter: 2025Q2

REPORT INFORMATION
  Report Type: Report from Study
  Country: US (occurrence: US)
  Receive Date: 20250522
  Receipt Date: 20250522
  Transmission Date: 20250716
  Serious: Yes (Other)
  Sender: ALEXION PHARMACEUTICALS
  Company Number: US-ASTRAZENECA-202505USA016096US

PATIENT

DRUGS (3)
  1. OLAPARIB [Suspect]
     Active Substance: OLAPARIB
     Indication: Pancreatic carcinoma
     Dosage: 300 MILLIGRAM, BID
  2. CAPECITABINE [Concomitant]
     Active Substance: CAPECITABINE
     Route: 065
  3. NIVESTYM [Concomitant]
     Active Substance: FILGRASTIM-AAFI
     Route: 065

REACTIONS (5)
  - Neuropathy peripheral [Unknown]
  - Paraesthesia [Unknown]
  - Fatigue [Unknown]
  - Hypokinesia [Unknown]
  - Hypoaesthesia [Unknown]
